FAERS Safety Report 15506364 (Version 2)
Quarter: 2018Q4

REPORT INFORMATION
  Report Type: Spontaneous
  Country: FR (occurrence: FR)
  Receive Date: 20181016
  Receipt Date: 20181114
  Transmission Date: 20190205
  Serious: Yes (Other)
  Sender: FDA-Public Use
  Company Number: PHHY2018FR125635

PATIENT
  Age: 42 Year
  Sex: Male
  Weight: 75 kg

DRUGS (7)
  1. RIVOTRIL [Concomitant]
     Active Substance: CLONAZEPAM
     Indication: EPILEPSY
     Dosage: 4 DROPS MORNING AND 5 DROPS EVENING
     Route: 065
     Dates: start: 20150523
  2. CELLCEPT [Concomitant]
     Active Substance: MYCOPHENOLATE MOFETIL\MYCOPHENOLATE MOFETIL HYDROCHLORIDE
     Indication: RENAL TRANSPLANT
     Dosage: 2 DF, QD
     Route: 065
     Dates: start: 20150523
  3. TEGRETOL [Suspect]
     Active Substance: CARBAMAZEPINE
     Indication: CLONUS
     Dosage: 200 MG, UNK
     Route: 048
     Dates: start: 20180924, end: 20180926
  4. TEGRETOL [Suspect]
     Active Substance: CARBAMAZEPINE
     Indication: EPILEPSY
     Dosage: 400 MG, UNK
     Route: 048
     Dates: start: 20180926, end: 20180928
  5. DEPAKINE CHRONO [Concomitant]
     Active Substance: VALPROATE SODIUM
     Indication: EPILEPSY
     Dosage: 2 DF, QD (1 MORNING, 1 EVENING)
     Route: 065
     Dates: start: 20150524
  6. ENVARSUS XR [Concomitant]
     Active Substance: TACROLIMUS
     Indication: RENAL TRANSPLANT
     Dosage: 75 OT, UNK (1 MORNING)
     Route: 065
     Dates: start: 20170630
  7. IPERTEN [Concomitant]
     Active Substance: MANIDIPINE
     Indication: HYPERTENSION
     Dosage: 10 OT, UNK (1 MORNING)
     Route: 065
     Dates: start: 20150523

REACTIONS (5)
  - General physical health deterioration [Unknown]
  - Confusional state [Recovered/Resolved]
  - Product use in unapproved indication [Unknown]
  - Seizure [Unknown]
  - Somnolence [Recovered/Resolved]

NARRATIVE: CASE EVENT DATE: 20180924
